FAERS Safety Report 13254344 (Version 1)
Quarter: 2017Q1

REPORT INFORMATION
  Report Type: Spontaneous
  Country: US (occurrence: US)
  Receive Date: 20170221
  Receipt Date: 20170221
  Transmission Date: 20170428
  Serious: No
  Sender: FDA-Public Use
  Company Number: US-TEVA-708082USA

PATIENT
  Sex: Male
  Weight: 81.72 kg

DRUGS (1)
  1. FLUOCINONIDE. [Suspect]
     Active Substance: FLUOCINONIDE
     Indication: PRURITUS
     Dosage: 0.05%
     Route: 061

REACTIONS (1)
  - Drug effect decreased [Unknown]
